FAERS Safety Report 8381520-4 (Version None)
Quarter: 2012Q2

REPORT INFORMATION
  Report Type: 
  Country: None (occurrence: None)
  Receive Date: 20120523
  Receipt Date: 20120518
  Transmission Date: 20120825
  Serious: Yes (Hospitalization, Other)
  Sender: FDA-Public Use
  Company Number: US-ROCHE-1044845

PATIENT
  Sex: Male
  Weight: 56.75 kg

DRUGS (6)
  1. ZELBORAF [Suspect]
     Indication: METASTATIC MALIGNANT MELANOMA
     Route: 048
     Dates: start: 20120104, end: 20120114
  2. TRAZODONE HCL [Concomitant]
     Route: 048
  3. PREDNISONE [Concomitant]
  4. ZELBORAF [Suspect]
     Route: 048
     Dates: start: 20120203, end: 20120212
  5. LOVASTATIN [Concomitant]
     Indication: HYPERCHOLESTEROLAEMIA
  6. DONEPEZIL HCL [Concomitant]
     Indication: DEMENTIA
     Route: 048

REACTIONS (6)
  - DERMATITIS EXFOLIATIVE [None]
  - PNEUMONIA [None]
  - PYREXIA [None]
  - DEMENTIA [None]
  - RASH [None]
  - CONFUSIONAL STATE [None]
